FAERS Safety Report 6077349-2 (Version None)
Quarter: 2009Q1

REPORT INFORMATION
  Report Type: 
  Country: None (occurrence: None)
  Receive Date: 20090213
  Receipt Date: 20090206
  Transmission Date: 20090719
  Serious: Yes (Hospitalization)
  Sender: FDA-Public Use
  Company Number: B0558694A

PATIENT
  Age: 64 Year
  Sex: Male

DRUGS (4)
  1. AUGMENTIN '125' [Suspect]
     Indication: CELLULITIS
     Route: 048
     Dates: start: 20081121, end: 20081204
  2. FURACIN [Suspect]
     Indication: CELLULITIS
     Route: 061
     Dates: start: 20081121, end: 20081205
  3. BACTROBAN [Suspect]
     Indication: CELLULITIS
     Route: 061
     Dates: start: 20081121, end: 20081204
  4. FLUCONAZOLE [Concomitant]
     Indication: CELLULITIS
     Route: 048
     Dates: start: 20081123, end: 20081130

REACTIONS (1)
  - ACRODERMATITIS [None]
